FAERS Safety Report 7098187-8 (Version None)
Quarter: 2010Q4

REPORT INFORMATION
  Report Type: 
  Country: None (occurrence: None)
  Receive Date: 20101104
  Receipt Date: 20101028
  Transmission Date: 20110411
  Serious: Yes (Hospitalization)
  Sender: FDA-Public Use
  Company Number: 2010JP005469

PATIENT
  Age: 62 Year
  Sex: Female
  Weight: 64 kg

DRUGS (7)
  1. PROGRAF [Suspect]
     Indication: COLITIS ULCERATIVE
     Dosage: 8 MG, /D, ORAL ; 5 MG, BID, ORAL ; 6 MG, /D, ORAL
     Route: 048
     Dates: start: 20100824, end: 20100904
  2. PROGRAF [Suspect]
     Indication: COLITIS ULCERATIVE
     Dosage: 8 MG, /D, ORAL ; 5 MG, BID, ORAL ; 6 MG, /D, ORAL
     Route: 048
     Dates: start: 20100905, end: 20100905
  3. PROGRAF [Suspect]
     Indication: COLITIS ULCERATIVE
     Dosage: 8 MG, /D, ORAL ; 5 MG, BID, ORAL ; 6 MG, /D, ORAL
     Route: 048
     Dates: start: 20100906
  4. CELECOXIB [Concomitant]
  5. PENTASA [Concomitant]
  6. DILTIAZEM HYDROCHLORIDE [Concomitant]
  7. GANCICLOVIR SODIUM [Concomitant]

REACTIONS (2)
  - HYPERKALAEMIA [None]
  - OVERDOSE [None]
